FAERS Safety Report 6184660-3 (Version None)
Quarter: 2009Q2

REPORT INFORMATION
  Report Type: 
  Country: None (occurrence: None)
  Receive Date: 20090508
  Receipt Date: 20090505
  Transmission Date: 20091009
  Serious: Yes (Death)
  Sender: FDA-Public Use
  Company Number: FR-BRISTOL-MYERS SQUIBB COMPANY-14615207

PATIENT
  Age: 78 Year
  Sex: Female

DRUGS (2)
  1. ERBITUX [Suspect]
     Indication: TONSIL CANCER
     Route: 042
  2. RADIOTHERAPY [Suspect]
     Indication: TONSIL CANCER

REACTIONS (1)
  - LUNG DISORDER [None]
